FAERS Safety Report 9866945 (Version 1)
Quarter: 2014Q1

REPORT INFORMATION
  Report Type: Spontaneous
  Country: US (occurrence: US)
  Receive Date: 20140204
  Receipt Date: 20140204
  Transmission Date: 20141002
  Serious: No
  Sender: FDA-Public Use
  Company Number: US-PFIZER INC-2014024741

PATIENT
  Sex: Female

DRUGS (2)
  1. ADVIL [Suspect]
     Dosage: UNK
     Route: 048
  2. ADVIL [Suspect]
     Dosage: 3 TABLETS, AT ONE TIME
     Route: 048
     Dates: start: 20140124

REACTIONS (3)
  - Extra dose administered [Unknown]
  - Headache [Unknown]
  - Pain [Unknown]
